FAERS Safety Report 23996124 (Version 1)
Quarter: 2024Q2

REPORT INFORMATION
  Report Type: Spontaneous
  Country: CA (occurrence: CA)
  Receive Date: 20240620
  Receipt Date: 20240620
  Transmission Date: 20240716
  Serious: Yes (Other)
  Sender: FDA-Public Use
  Company Number: CA-Vifor (International) Inc.-VIT-2024-05207

PATIENT
  Sex: Male
  Weight: 58 kg

DRUGS (8)
  1. KORSUVA [Suspect]
     Active Substance: DIFELIKEFALIN ACETATE
     Indication: Pruritus
     Dosage: THERAPY DURATION: 112 DAYS. (0.6 ML, 3 IN 1 WK)
     Route: 042
  2. FERINJECT [Suspect]
     Active Substance: FERRIC CARBOXYMALTOSE
     Indication: Anaemia
     Dosage: THERAPY DURATION: 1 DAY. (1 IN 2 M)
     Route: 042
  3. VENOFER [Suspect]
     Active Substance: IRON SUCROSE
     Indication: Anaemia
     Dosage: (1 IN 2 M)
     Route: 042
  4. AMLODIPINE [Concomitant]
     Active Substance: AMLODIPINE BESYLATE
     Dosage: UNKNOWN
     Route: 050
  5. CALCITRIOL [Concomitant]
     Active Substance: CALCITRIOL
  6. COLACE [Concomitant]
     Active Substance: DOCUSATE SODIUM
  7. CHOLECALCIFEROL [Concomitant]
     Active Substance: CHOLECALCIFEROL
  8. ALLOPURINOL [Concomitant]
     Active Substance: ALLOPURINOL

REACTIONS (3)
  - Balance disorder [Unknown]
  - Muscular weakness [Unknown]
  - Fall [Unknown]
